FAERS Safety Report 11357540 (Version 1)
Quarter: 2015Q3

REPORT INFORMATION
  Report Type: Spontaneous
  Country: US (occurrence: US)
  Receive Date: 20150803
  Receipt Date: 20150803
  Transmission Date: 20151125
  Serious: No
  Sender: FDA-Public Use
  Company Number: US-ELI_LILLY_AND_COMPANY-US201405010287

PATIENT
  Sex: Female

DRUGS (2)
  1. ZYPREXA [Suspect]
     Active Substance: OLANZAPINE
     Dosage: 2.5 MG, UNKNOWN
     Route: 065
     Dates: end: 201405
  2. ZYPREXA [Suspect]
     Active Substance: OLANZAPINE
     Indication: DEPRESSION
     Dosage: 10 MG, UNKNOWN
     Route: 065
     Dates: start: 201212

REACTIONS (13)
  - Chest pain [Unknown]
  - Hypertension [Unknown]
  - Initial insomnia [Unknown]
  - Hyperhidrosis [Unknown]
  - Anxiety [Unknown]
  - Heart rate abnormal [Unknown]
  - Erythema [Unknown]
  - Drug ineffective [Unknown]
  - Depression [Unknown]
  - Tinnitus [Unknown]
  - Wrong technique in product usage process [Unknown]
  - Crying [Unknown]
  - Malaise [Unknown]

NARRATIVE: CASE EVENT DATE: 20140528
